FAERS Safety Report 20460040 (Version 1)
Quarter: 2022Q1

REPORT INFORMATION
  Report Type: Spontaneous
  Country: DE (occurrence: DE)
  Receive Date: 20220211
  Receipt Date: 20220211
  Transmission Date: 20220424
  Serious: Yes (Hospitalization)
  Sender: FDA-Public Use
  Company Number: None

PATIENT
  Age: 63 Year
  Sex: Female

DRUGS (1)
  1. FINGOLIMOD [Suspect]
     Active Substance: FINGOLIMOD
     Indication: Relapsing-remitting multiple sclerosis
     Dosage: STARTED AT THE AGE OF 56 YEAR
     Route: 065

REACTIONS (4)
  - Human polyomavirus infection [Unknown]
  - Metastases to central nervous system [Unknown]
  - Progressive multifocal leukoencephalopathy [Unknown]
  - Lung adenocarcinoma [Unknown]
